FAERS Safety Report 4746266-X (Version None)
Quarter: 2005Q3

REPORT INFORMATION
  Report Type: 
  Country: None (occurrence: None)
  Receive Date: 20050816
  Receipt Date: 20050727
  Transmission Date: 20060218
  Serious: Yes (Other)
  Sender: FDA-Public Use
  Company Number: USA0507102636

PATIENT
  Age: 83 Year
  Sex: Female

DRUGS (18)
  1. CYMBALTA [Suspect]
     Indication: DEPRESSION
     Dosage: 60 MG
  2. ZELNORM [Concomitant]
  3. MICRO K (POTASSIUM CHLORIDE) [Concomitant]
  4. DEMADEX [Concomitant]
  5. FOSAMAX [Concomitant]
  6. LOZOL [Concomitant]
  7. ATENOLOL [Concomitant]
  8. NORVASC [Concomitant]
  9. MOBIC [Concomitant]
  10. PLETAL [Concomitant]
  11. LIPITOR [Concomitant]
  12. COZAAR [Concomitant]
  13. ACAMPROSATE CALCIUM [Concomitant]
  14. MULTI-VITAMINS [Concomitant]
  15. RESTORIL [Concomitant]
  16. ZETIA [Concomitant]
  17. LOVENOX [Concomitant]
  18. ISOSORBIDE MONONITRATE [Concomitant]

REACTIONS (3)
  - BLOOD CHLORIDE DECREASED [None]
  - INAPPROPRIATE ANTIDIURETIC HORMONE SECRETION [None]
  - SPINAL COMPRESSION FRACTURE [None]
